FAERS Safety Report 12296844 (Version 1)
Quarter: 2016Q2

REPORT INFORMATION
  Report Type: Report from Study
  Country: US (occurrence: US)
  Receive Date: 20160422
  Receipt Date: 20160422
  Transmission Date: 20160815
  Serious: Yes (Hospitalization)
  Sender: FDA-Public Use
  Company Number: PHHO2016US005723

PATIENT
  Age: 57 Year
  Sex: Female
  Weight: 84.81 kg

DRUGS (10)
  1. CARBOPLATIN. [Suspect]
     Active Substance: CARBOPLATIN
     Indication: OVARIAN CANCER
     Dosage: 435 MG, ONCE Q 28 DAYS
     Route: 042
     Dates: start: 20160322, end: 20160322
  2. AFINITOR [Suspect]
     Active Substance: EVEROLIMUS
     Indication: OVARIAN EPITHELIAL CANCER
     Dosage: 5 MG, QD
     Route: 048
     Dates: start: 20160322
  3. COLACE [Concomitant]
     Active Substance: DOCUSATE SODIUM
     Indication: PRODUCT USED FOR UNKNOWN INDICATION
     Route: 065
  4. DOXIL [Suspect]
     Active Substance: DOXORUBICIN HYDROCHLORIDE
     Indication: OVARIAN CANCER
     Dosage: 58 MG, ONCE Q 28 DAYS
     Route: 042
     Dates: start: 20160322, end: 20160322
  5. MIRALAX [Concomitant]
     Active Substance: POLYETHYLENE GLYCOL 3350
     Indication: PRODUCT USED FOR UNKNOWN INDICATION
     Route: 065
  6. RESTORIL [Concomitant]
     Active Substance: TEMAZEPAM
     Indication: PRODUCT USED FOR UNKNOWN INDICATION
     Route: 065
  7. DURAGESIC [Concomitant]
     Active Substance: FENTANYL
     Indication: PRODUCT USED FOR UNKNOWN INDICATION
     Route: 065
  8. DILAUDID [Concomitant]
     Active Substance: HYDROMORPHONE HYDROCHLORIDE
     Indication: PRODUCT USED FOR UNKNOWN INDICATION
     Route: 065
  9. ZOFRAN [Concomitant]
     Active Substance: ONDANSETRON HYDROCHLORIDE
     Indication: PRODUCT USED FOR UNKNOWN INDICATION
     Route: 065
  10. ATIVAN [Concomitant]
     Active Substance: LORAZEPAM
     Indication: PRODUCT USED FOR UNKNOWN INDICATION
     Route: 065

REACTIONS (11)
  - Platelet disorder [Unknown]
  - Deep vein thrombosis [Unknown]
  - Oedema peripheral [Unknown]
  - Pain in extremity [Recovering/Resolving]
  - Oral pain [Unknown]
  - Anaemia [Unknown]
  - White blood cell disorder [Unknown]
  - Pulmonary embolism [Unknown]
  - Chest pain [Unknown]
  - Neutrophil count abnormal [Unknown]
  - Dyspnoea [Recovering/Resolving]

NARRATIVE: CASE EVENT DATE: 20160408
